FAERS Safety Report 9210897 (Version 3)
Quarter: 2013Q2

REPORT INFORMATION
  Report Type: Report from Study
  Country: FR (occurrence: FR)
  Receive Date: 20130404
  Receipt Date: 20130621
  Transmission Date: 20140414
  Serious: Yes (Hospitalization, Other)
  Sender: FDA-Public Use
  Company Number: FR-AMGEN-FRANI2013023483

PATIENT
  Age: 80 Year
  Sex: Male
  Weight: 73 kg

DRUGS (6)
  1. PEGFILGRASTIM [Suspect]
     Indication: PROPHYLAXIS
     Dosage: 6 MG, Q3WK
     Route: 058
     Dates: start: 20121227, end: 20121228
  2. RITUXIMAB [Concomitant]
     Indication: FEBRILE NEUTROPENIA
     Dosage: 375 MUG/M2, Q4WK
  3. ENDOXAN [Concomitant]
     Indication: FEBRILE NEUTROPENIA
     Dosage: 200 MUG/M2, UNK
  4. VINCRISTINE [Concomitant]
  5. SOLUPRED [Concomitant]
     Indication: FEBRILE NEUTROPENIA
     Dosage: 40 MUG, UNK
  6. CELLTOP [Concomitant]
     Indication: FEBRILE NEUTROPENIA
     Dosage: 150 MUG/M2, UNK

REACTIONS (3)
  - Cardiac failure [Unknown]
  - Sepsis [Unknown]
  - Febrile neutropenia [Recovered/Resolved]
